FAERS Safety Report 22395342 (Version 1)
Quarter: 2023Q2

REPORT INFORMATION
  Report Type: Spontaneous
  Country: US (occurrence: US)
  Receive Date: 20230601
  Receipt Date: 20230601
  Transmission Date: 20230721
  Serious: No
  Sender: FDA-Public Use
  Company Number: US-APIL-2312093US

PATIENT
  Sex: Female

DRUGS (1)
  1. UBROGEPANT [Suspect]
     Active Substance: UBROGEPANT
     Indication: Migraine
     Dosage: 100 MG

REACTIONS (2)
  - Mouth ulceration [Unknown]
  - Stomatitis [Unknown]
